FAERS Safety Report 14577982 (Version 1)
Quarter: 2018Q1

REPORT INFORMATION
  Report Type: Spontaneous
  Country: US (occurrence: US)
  Receive Date: 20180227
  Receipt Date: 20180227
  Transmission Date: 20180509
  Serious: No
  Sender: FDA-Public Use
  Company Number: US-TEVA-2018-US-857776

PATIENT
  Age: 84 Year
  Sex: Female

DRUGS (2)
  1. ATELVIA [Suspect]
     Active Substance: RISEDRONATE SODIUM
     Dates: start: 20180101
  2. ATELVIA [Suspect]
     Active Substance: RISEDRONATE SODIUM
     Dates: end: 201309

REACTIONS (3)
  - Gastrointestinal disorder [Unknown]
  - Upper respiratory tract infection [Unknown]
  - Influenza [Unknown]
